FAERS Safety Report 8127083-X (Version None)
Quarter: 2012Q1

REPORT INFORMATION
  Report Type: 
  Country: None (occurrence: None)
  Receive Date: 20120210
  Receipt Date: 20120201
  Transmission Date: 20120608
  Serious: Yes (Hospitalization, Other)
  Sender: FDA-Public Use
  Company Number: JP-JNJFOC-20120107691

PATIENT
  Sex: Male

DRUGS (11)
  1. LEVOFLOXACIN [Suspect]
     Indication: PNEUMONIA
     Route: 041
     Dates: start: 20111230, end: 20111231
  2. ANTIHYPERTENSION MEDICATION [Concomitant]
     Indication: HYPERTENSION
     Route: 048
     Dates: start: 20110217
  3. URINORM [Concomitant]
     Indication: HYPERURICAEMIA
     Route: 048
     Dates: start: 20081209
  4. EPADEL [Concomitant]
     Indication: DYSLIPIDAEMIA
     Route: 048
     Dates: start: 20100624
  5. SEDIEL [Concomitant]
     Indication: ANXIETY DISORDER
     Route: 048
     Dates: start: 20101101
  6. CARVEDILOL [Concomitant]
     Indication: HYPERTENSION
     Route: 048
     Dates: start: 20110317
  7. URALYT-U [Concomitant]
     Indication: HYPERURICAEMIA
     Route: 048
     Dates: start: 20081209
  8. LENDORMIN D [Concomitant]
     Indication: INSOMNIA
     Route: 048
     Dates: start: 20100930
  9. DEPAS [Concomitant]
     Indication: ANXIETY DISORDER
     Route: 048
     Dates: start: 20101111
  10. BEZATOL SR [Concomitant]
     Indication: DYSLIPIDAEMIA
     Route: 048
     Dates: start: 20100524
  11. MUCODYNE [Concomitant]
     Indication: CHRONIC OBSTRUCTIVE PULMONARY DISEASE
     Route: 048
     Dates: start: 20111216

REACTIONS (3)
  - HYPOTENSION [None]
  - ATRIAL FIBRILLATION [None]
  - DIZZINESS [None]
